FAERS Safety Report 9107696 (Version 1)
Quarter: 2013Q1

REPORT INFORMATION
  Report Type: Spontaneous
  Country: US (occurrence: US)
  Receive Date: 20130222
  Receipt Date: 20130222
  Transmission Date: 20140127
  Serious: No
  Sender: FDA-Public Use
  Company Number: US-TEVA-349643USA

PATIENT
  Sex: Male

DRUGS (13)
  1. TREANDA [Suspect]
     Indication: CHRONIC LYMPHOCYTIC LEUKAEMIA
     Dosage: 75 MG/M2 DAILY;
     Route: 042
  2. TREANDA [Suspect]
     Indication: NODAL MARGINAL ZONE B-CELL LYMPHOMA
  3. RITUXAN [Concomitant]
  4. ALLOPURINOL [Concomitant]
     Dates: start: 20120620
  5. TOPROL [Concomitant]
  6. ASA [Concomitant]
  7. LOSARTAN [Concomitant]
  8. BACTRIM DS [Concomitant]
  9. FAMVIR [Concomitant]
  10. MEDROL [Concomitant]
  11. ZOFRAN [Concomitant]
  12. FISH OIL [Concomitant]
  13. VITAMIN [Concomitant]

REACTIONS (1)
  - Rash [Unknown]
